FAERS Safety Report 5850142-9 (Version None)
Quarter: 2008Q3

REPORT INFORMATION
  Report Type: 
  Country: None (occurrence: None)
  Receive Date: 20080819
  Receipt Date: 20080812
  Transmission Date: 20090109
  Serious: No
  Sender: FDA-Public Use
  Company Number: US-BOEHRINGER INGELHEIM GMBH, GERMANY-2008-BP-12757BP

PATIENT
  Age: 76 Year
  Sex: Female

DRUGS (6)
  1. COMBIVENT [Suspect]
     Indication: DYSPNOEA
     Route: 055
  2. GLUCOPHAGE [Concomitant]
     Indication: TYPE 2 DIABETES MELLITUS
  3. CITALOPRAM HYDROBROMIDE [Concomitant]
     Indication: HEARING DISABILITY
  4. LANOXIN [Concomitant]
     Indication: CARDIAC DISORDER
  5. LESTORETIC [Concomitant]
     Indication: HYPERTENSION
  6. NORVASC [Concomitant]
     Indication: HYPERTENSION

REACTIONS (1)
  - DRUG EFFECT DECREASED [None]
